FAERS Safety Report 5840478-X (Version None)
Quarter: 2008Q3

REPORT INFORMATION
  Report Type: 
  Country: None (occurrence: None)
  Receive Date: 20080807
  Receipt Date: 20080807
  Transmission Date: 20090109
  Serious: Yes (Life-Threatening)
  Sender: FDA-Public Use
  Company Number: None

PATIENT
  Age: 18 Year
  Sex: Female
  Weight: 49.4421 kg

DRUGS (1)
  1. TRILEPTAL [Suspect]
     Indication: CONVULSION
     Dosage: 1 TABLET TWICE A DAY PO
     Route: 048
     Dates: start: 20080115, end: 20080807

REACTIONS (2)
  - DEPRESSION [None]
  - SUICIDAL IDEATION [None]
